FAERS Safety Report 19146479 (Version 2)
Quarter: 2021Q2

REPORT INFORMATION
  Report Type: Spontaneous
  Country: US (occurrence: US)
  Receive Date: 20210416
  Receipt Date: 20210528
  Transmission Date: 20210717
  Serious: Yes (Life-Threatening, Hospitalization, Disabling, Other)
  Sender: FDA-Public Use
  Company Number: US-ASTRAZENECA-2021A286542

PATIENT
  Sex: Male
  Weight: 111.1 kg

DRUGS (28)
  1. SEROQUEL [Suspect]
     Active Substance: QUETIAPINE FUMARATE
     Indication: SCHIZOPHRENIA
     Route: 048
     Dates: start: 20210402
  2. SEROQUEL [Suspect]
     Active Substance: QUETIAPINE FUMARATE
     Indication: SCHIZOPHRENIA
     Route: 048
     Dates: start: 20210402
  3. ACETAMINOPHEN. [Concomitant]
     Active Substance: ACETAMINOPHEN
     Indication: PAIN
     Route: 048
     Dates: start: 20201231
  4. ACETAMINOPHEN. [Concomitant]
     Active Substance: ACETAMINOPHEN
     Indication: PAIN
     Route: 048
     Dates: start: 20201231
  5. HALOPERIDOL. [Concomitant]
     Active Substance: HALOPERIDOL
     Indication: AGITATION
     Route: 048
     Dates: start: 20210422
  6. SODIUM CHLORIDE. [Concomitant]
     Active Substance: SODIUM CHLORIDE
     Dosage: 0.65% 45 ML
     Route: 065
     Dates: start: 20210301
  7. SEROQUEL [Suspect]
     Active Substance: QUETIAPINE FUMARATE
     Indication: SCHIZOPHRENIA
     Route: 048
     Dates: start: 20210202
  8. DIVALPROEX ER [Concomitant]
     Active Substance: DIVALPROEX SODIUM
     Route: 048
     Dates: start: 20210202
  9. DOCUSATE SODIUM. [Concomitant]
     Active Substance: DOCUSATE SODIUM
     Indication: CONSTIPATION
     Route: 048
     Dates: start: 20201231
  10. PETROLEUM JELLY [Concomitant]
     Active Substance: PETROLATUM
     Indication: HYPERKERATOSIS
     Dosage: 30 GM
     Route: 065
     Dates: start: 20210326
  11. ALBUTEROL INHALER HFA [Concomitant]
     Active Substance: ALBUTEROL
     Dosage: 8.5 MG /2 PUFFS BY MOUTH FOUR TIMES DAILY
     Route: 048
     Dates: start: 20210311
  12. DIPHENHYDRAMINE. [Concomitant]
     Active Substance: DIPHENHYDRAMINE
     Indication: EXTRAPYRAMIDAL DISORDER
     Route: 048
     Dates: start: 20210202
  13. LORAZEPAM. [Concomitant]
     Active Substance: LORAZEPAM
     Route: 048
     Dates: start: 20210422
  14. LORAZEPAM. [Concomitant]
     Active Substance: LORAZEPAM
     Route: 048
     Dates: start: 20210422
  15. DEPEKOTE [Concomitant]
     Route: 048
     Dates: start: 20201231
  16. LEVOTHYROXINE. [Concomitant]
     Active Substance: LEVOTHYROXINE
     Indication: HYPOTHYROIDISM
     Route: 048
     Dates: start: 20201231
  17. MAGNESIUM HYDROXIDE. [Concomitant]
     Active Substance: MAGNESIUM HYDROXIDE
     Indication: CONSTIPATION
     Route: 048
     Dates: start: 20210311
  18. PROPRANOLOL [Concomitant]
     Active Substance: PROPRANOLOL HYDROCHLORIDE
     Indication: TREMOR
     Route: 048
     Dates: start: 20201231
  19. CHOLECALCIFEROL [Concomitant]
     Active Substance: CHOLECALCIFEROL
     Route: 048
     Dates: start: 20201231
  20. SEROQUEL [Suspect]
     Active Substance: QUETIAPINE FUMARATE
     Indication: AGITATION
     Route: 048
     Dates: start: 20210202
  21. ATORVASTATIN [Concomitant]
     Active Substance: ATORVASTATIN
     Route: 048
     Dates: start: 20201231
  22. HALOPERIDOL. [Concomitant]
     Active Substance: HALOPERIDOL
     Indication: PSYCHOTIC DISORDER
     Route: 048
     Dates: start: 20210422
  23. OMEPRAZOLE. [Concomitant]
     Active Substance: OMEPRAZOLE
     Indication: PEPTIC ULCER
     Route: 048
     Dates: start: 20210311
  24. CAPSAICIN. [Concomitant]
     Active Substance: CAPSAICIN
     Indication: PAIN
     Route: 065
     Dates: start: 20210326
  25. SEROQUEL [Suspect]
     Active Substance: QUETIAPINE FUMARATE
     Indication: AGITATION
     Route: 048
     Dates: start: 20210402
  26. SEROQUEL [Suspect]
     Active Substance: QUETIAPINE FUMARATE
     Indication: AGITATION
     Route: 048
     Dates: start: 20210402
  27. ALOH/MGOH/SIMETH [Concomitant]
     Route: 048
     Dates: start: 20201231
  28. LIDOCAINE. [Concomitant]
     Active Substance: LIDOCAINE
     Indication: BACK PAIN
     Dosage: 5% 35.44 GM
     Route: 065
     Dates: start: 20210409

REACTIONS (6)
  - Blindness unilateral [Unknown]
  - Sudden onset of sleep [Unknown]
  - Facial bones fracture [Unknown]
  - Skull fracture [Unknown]
  - Head injury [Unknown]
  - Coma [Unknown]
